FAERS Safety Report 12917162 (Version 2)
Quarter: 2016Q4

REPORT INFORMATION
  Report Type: Spontaneous
  Country: GB (occurrence: GB)
  Receive Date: 20161107
  Receipt Date: 20161121
  Transmission Date: 20170207
  Serious: Yes (Other)
  Sender: FDA-Public Use
  Company Number: GB-TEVA-708745ISR

PATIENT
  Sex: Male
  Weight: 3.49 kg

DRUGS (7)
  1. CITALOPRAM [Suspect]
     Active Substance: CITALOPRAM HYDROBROMIDE
     Indication: DEPRESSION
     Dosage: EVERY MORNING; INITIATED IN THE THIRD TRIMESTER
     Route: 064
  2. PARACETAMOL, CODEINE PHOSPHATE [Suspect]
     Active Substance: ACETAMINOPHEN\CODEINE PHOSPHATE
     Indication: ANXIETY
     Dosage: EIGHT PARACETAMOL/CODEINE PHOSPHATE TABLETS; 4G/240MG AS A SINGLE DOSE DURING ANXIETY EPISODES
     Route: 064
  3. CODEINE [Suspect]
     Active Substance: CODEINE
     Route: 064
  4. TRAMADOL. [Suspect]
     Active Substance: TRAMADOL
     Route: 064
  5. ZOLPIDEM [Suspect]
     Active Substance: ZOLPIDEM\ZOLPIDEM TARTRATE
     Indication: INSOMNIA
     Dosage: EVERY NIGHT; THROUGHOUT PREGNANCY
     Route: 064
  6. CHLORPROMAZINE. [Suspect]
     Active Substance: CHLORPROMAZINE
     Indication: AGITATION
     Dosage: INITIATED IN THE THIRD TRIMESTER
     Route: 064
  7. PARACETAMOL, CODEINE PHOSPHATE [Suspect]
     Active Substance: ACETAMINOPHEN\CODEINE PHOSPHATE
     Indication: BACK PAIN
     Dosage: 500MG/30MG TWO TABLETS FOUR TIMES A DAY
     Route: 064

REACTIONS (2)
  - Drug withdrawal syndrome neonatal [Recovering/Resolving]
  - Foetal exposure during pregnancy [Unknown]
